FAERS Safety Report 20637006 (Version 1)
Quarter: 2022Q1

REPORT INFORMATION
  Report Type: Spontaneous
  Country: DK (occurrence: DK)
  Receive Date: 20220325
  Receipt Date: 20220325
  Transmission Date: 20220423
  Serious: Yes (Death)
  Sender: FDA-Public Use
  Company Number: None

PATIENT
  Age: 27 Year
  Sex: Male

DRUGS (2)
  1. CIPROFLOXACIN [Suspect]
     Active Substance: CIPROFLOXACIN
     Indication: Diarrhoea haemorrhagic
     Dosage: UNIT DOSE : 1000 MG , STRENGTH: 500MG
     Route: 048
     Dates: start: 20210909
  2. SPIKEVAX [Suspect]
     Active Substance: ELASOMERAN
     Indication: COVID-19 immunisation
     Dosage: DOSE 2 , UNIT DOSE : 1 DF
     Route: 030
     Dates: start: 20210825, end: 20210825

REACTIONS (1)
  - Aortic rupture [Fatal]

NARRATIVE: CASE EVENT DATE: 20210916
